FAERS Safety Report 25469268 (Version 1)
Quarter: 2025Q2

REPORT INFORMATION
  Report Type: Report from Study
  Country: US (occurrence: US)
  Receive Date: 20250623
  Receipt Date: 20250623
  Transmission Date: 20250717
  Serious: Yes (Other)
  Sender: TAIHO ONCOLOGY INC
  Company Number: US-TAIHOP-2025-001750

PATIENT
  Sex: Female

DRUGS (18)
  1. INQOVI [Suspect]
     Active Substance: CEDAZURIDINE\DECITABINE
     Indication: Chronic myelomonocytic leukaemia
     Dosage: DECITABINE 35MG + CEDAZURIDINE 100 MG ON DAYS 1-3 OF EACH 28-DAY CYCLE; CYCLE UNKNOWN
     Route: 048
     Dates: start: 20241224
  2. INQOVI [Suspect]
     Active Substance: CEDAZURIDINE\DECITABINE
     Dosage: DECITABINE 35MG + CEDAZURIDINE 100 MG ON DAYS 1-5 OF EACH 28-DAY CYCLE; CYCLE UNKNOWN
     Route: 048
  3. AMLODIPINE [Concomitant]
     Active Substance: AMLODIPINE BESYLATE
     Indication: Product used for unknown indication
  4. BUPROPION HYDROCHLORIDE [Concomitant]
     Active Substance: BUPROPION HYDROCHLORIDE
     Indication: Product used for unknown indication
  5. CARVEDILOL [Concomitant]
     Active Substance: CARVEDILOL
     Indication: Product used for unknown indication
  6. CITALOPRAM [Concomitant]
     Active Substance: CITALOPRAM
     Indication: Product used for unknown indication
  7. CYCLOBENZAPRINE [Concomitant]
     Active Substance: CYCLOBENZAPRINE
     Indication: Product used for unknown indication
  8. FENOFIBRATE [Concomitant]
     Active Substance: FENOFIBRATE
     Indication: Product used for unknown indication
  9. FOLATE SODIUM [Concomitant]
     Active Substance: FOLATE SODIUM
     Indication: Product used for unknown indication
  10. LEVOTHYROXINE [Concomitant]
     Active Substance: LEVOTHYROXINE
     Indication: Product used for unknown indication
  11. LOMOTIL [Concomitant]
     Active Substance: ATROPINE SULFATE\DIPHENOXYLATE HYDROCHLORIDE
     Indication: Product used for unknown indication
  12. LOSARTAN POTASSIUM [Concomitant]
     Active Substance: LOSARTAN POTASSIUM
     Indication: Product used for unknown indication
  13. QUETIAPINE [Concomitant]
     Active Substance: QUETIAPINE
     Indication: Product used for unknown indication
  14. ROSUVASTATIN [Concomitant]
     Active Substance: ROSUVASTATIN
     Indication: Product used for unknown indication
  15. TRAMADOL HCL [Concomitant]
     Active Substance: TRAMADOL HYDROCHLORIDE
     Indication: Product used for unknown indication
  16. ARANESP [Concomitant]
     Active Substance: DARBEPOETIN ALFA
     Indication: Product used for unknown indication
  17. ONDANSETRON [Concomitant]
     Active Substance: ONDANSETRON
     Indication: Product used for unknown indication
  18. PROCHLOPER [Concomitant]
     Indication: Product used for unknown indication

REACTIONS (15)
  - Chronic kidney disease [Unknown]
  - Fall [Unknown]
  - Tremor [Unknown]
  - Stress [Unknown]
  - Musculoskeletal discomfort [Unknown]
  - Memory impairment [Unknown]
  - Blood pressure diastolic decreased [Unknown]
  - Muscle spasms [Unknown]
  - Erythema [Unknown]
  - Anxiety [Unknown]
  - Fatigue [Unknown]
  - Headache [Not Recovered/Not Resolved]
  - Constipation [Unknown]
  - Nausea [Not Recovered/Not Resolved]
  - Inappropriate schedule of product administration [Recovered/Resolved]
